FAERS Safety Report 21879928 (Version 1)
Quarter: 2023Q1

REPORT INFORMATION
  Report Type: Spontaneous
  Country: US (occurrence: None)
  Receive Date: 20230117
  Receipt Date: 20230117
  Transmission Date: 20230418
  Serious: Yes (Hospitalization)
  Sender: FDA-Public Use
  Company Number: None

PATIENT
  Age: 40 Year
  Sex: Male
  Weight: 68.9 kg

DRUGS (5)
  1. OCREVUS [Suspect]
     Active Substance: OCRELIZUMAB
     Indication: Multiple sclerosis
     Dosage: OTHER FREQUENCY : Q6MONTH;?
     Route: 042
     Dates: start: 20171027
  2. CYCLOBENZAPRINE [Concomitant]
     Active Substance: CYCLOBENZAPRINE
     Dates: start: 20210622
  3. EthambutoL (MYAMBUTOL) [Concomitant]
     Dates: start: 20200508
  4. ValACYclovir (VALTREX) [Concomitant]
     Dates: start: 20210318
  5. Albuterol sulfate 90 mcg/actuation HFA inhaler [Concomitant]
     Dates: start: 20161230

REACTIONS (3)
  - Pneumonia [None]
  - Dizziness [None]
  - Diplopia [None]

NARRATIVE: CASE EVENT DATE: 20220513
